FAERS Safety Report 11648817 (Version 3)
Quarter: 2015Q4

REPORT INFORMATION
  Report Type: Spontaneous
  Country: US (occurrence: US)
  Receive Date: 20151021
  Receipt Date: 20151201
  Transmission Date: 20160304
  Serious: Yes (Other)
  Sender: FDA-Public Use
  Company Number: US-ASTELLAS-2015US035552

PATIENT
  Age: 66 Year
  Sex: Male

DRUGS (2)
  1. LEXISCAN [Suspect]
     Active Substance: REGADENOSON
     Indication: DYSPNOEA
  2. LEXISCAN [Suspect]
     Active Substance: REGADENOSON
     Indication: ATRIAL FIBRILLATION
     Dosage: 0.4 MG X 1 DOSE (ONCE)
     Route: 042
     Dates: start: 20150921, end: 20150921

REACTIONS (3)
  - Atrioventricular block complete [Recovered/Resolved]
  - Off label use [Unknown]
  - Heart rate decreased [Recovered/Resolved]

NARRATIVE: CASE EVENT DATE: 20150921
